FAERS Safety Report 8630667 (Version 4)
Quarter: 2013Q2

REPORT INFORMATION
  Report Type: Spontaneous
  Country: JP (occurrence: JP)
  Receive Date: 20120622
  Receipt Date: 20130618
  Transmission Date: 20140414
  Serious: Yes (Death, Other)
  Sender: FDA-Public Use
  Company Number: JP-ELI_LILLY_AND_COMPANY-JP201206006697

PATIENT
  Age: 83 Year
  Sex: Female

DRUGS (25)
  1. FORTEO [Suspect]
     Indication: OSTEOPOROSIS
     Dosage: 20 UG, QD
     Route: 058
     Dates: start: 20120525, end: 20120618
  2. SOLDEM 3A [Concomitant]
     Dosage: 1 DF, QID
     Route: 042
     Dates: start: 20120518, end: 20120520
  3. SOLDEM 3A [Concomitant]
     Dosage: 1 DF, BID
     Route: 042
     Dates: start: 20120521, end: 20120523
  4. SOLDEM 3A [Concomitant]
     Dosage: 1 DF, QD
     Route: 042
     Dates: start: 20120524, end: 20120530
  5. MAGMITT [Concomitant]
     Indication: CONSTIPATION
     Dosage: 1 DF, TID
     Route: 048
     Dates: start: 20120518, end: 20120606
  6. ADETPHOS [Concomitant]
     Indication: CEREBRAL INFARCTION
     Dosage: 1 G, TID
     Route: 048
     Dates: start: 20120519, end: 20120621
  7. SODIUM CHLORIDE INJECTION [Concomitant]
     Route: 042
  8. LOXOMARIN [Concomitant]
     Route: 048
  9. MUCOSTA [Concomitant]
     Route: 048
  10. MERISLON [Concomitant]
     Indication: CEREBRAL INFARCTION
     Dosage: 2 DF, TID
     Route: 048
     Dates: start: 20120519, end: 20120621
  11. CEROCRAL [Concomitant]
     Indication: CEREBRAL INFARCTION
     Dosage: 1 DF, TID
     Route: 048
     Dates: start: 20120519, end: 20120621
  12. LASIX [Concomitant]
     Route: 048
  13. AMOBAN [Concomitant]
     Route: 048
  14. KREMEZIN [Concomitant]
     Route: 048
  15. VEEN D [Concomitant]
     Route: 042
  16. GASTER D [Concomitant]
     Dosage: 10 MG, QD
     Route: 048
  17. PREDONINE [Concomitant]
     Dosage: 10 MG, EACH MORNING
     Route: 048
  18. PURSENNID                          /00571902/ [Concomitant]
     Route: 048
  19. ADOFEED [Concomitant]
     Route: 062
  20. CRAVIT [Concomitant]
     Route: 048
  21. LOXONIN [Concomitant]
     Route: 062
  22. LASIX [Concomitant]
     Dosage: 10 MG, EACH MORNING
     Route: 042
  23. PHYSIOSOL 3 [Concomitant]
     Route: 042
  24. NEOAMIYU [Concomitant]
     Route: 042
  25. CLARITH [Concomitant]
     Dosage: 400 MG, BID
     Route: 048

REACTIONS (10)
  - Cerebral haemorrhage [Fatal]
  - Histiocytosis haematophagic [Not Recovered/Not Resolved]
  - Decreased appetite [Not Recovered/Not Resolved]
  - Abdominal distension [Not Recovered/Not Resolved]
  - Aptyalism [Not Recovered/Not Resolved]
  - Toothache [Not Recovered/Not Resolved]
  - Anaemia [Not Recovered/Not Resolved]
  - Hypoalbuminaemia [Not Recovered/Not Resolved]
  - C-reactive protein increased [Not Recovered/Not Resolved]
  - Vitreous floaters [Unknown]
